FAERS Safety Report 9404726 (Version 1)
Quarter: 2013Q3

REPORT INFORMATION
  Report Type: Spontaneous
  Country: US (occurrence: None)
  Receive Date: 20130716
  Receipt Date: 20130716
  Transmission Date: 20140515
  Serious: No
  Sender: FDA-Public Use
  Company Number: None

PATIENT
  Age: 51 Year
  Sex: Female
  Weight: 62.14 kg

DRUGS (1)
  1. AMOXICILLIN [Suspect]
     Indication: LYME DISEASE
     Route: 048
     Dates: start: 20130708, end: 20130711

REACTIONS (1)
  - Ageusia [None]
